FAERS Safety Report 22532042 (Version 1)
Quarter: 2023Q2

REPORT INFORMATION
  Report Type: Spontaneous
  Country: US (occurrence: US)
  Receive Date: 20230607
  Receipt Date: 20230607
  Transmission Date: 20230721
  Serious: Yes (Hospitalization)
  Sender: FDA-Public Use
  Company Number: US-PFIZER INC-US-GBT-21-04766

PATIENT
  Age: 23 Year
  Sex: Male

DRUGS (2)
  1. OXBRYTA [Suspect]
     Active Substance: VOXELOTOR
     Dosage: TAKE THREE TABLETS, ONCE DAILY
     Route: 048
     Dates: start: 20210707
  2. OXBRYTA [Suspect]
     Active Substance: VOXELOTOR
     Dosage: TAKE THREE TABLETS, ONCE DAILY
     Route: 048

REACTIONS (2)
  - Sickle cell anaemia with crisis [Unknown]
  - Diarrhoea [Unknown]

NARRATIVE: CASE EVENT DATE: 20211116
